FAERS Safety Report 7598672-6 (Version None)
Quarter: 2011Q3

REPORT INFORMATION
  Report Type: 
  Country: None (occurrence: None)
  Receive Date: 20110711
  Receipt Date: 20110701
  Transmission Date: 20111222
  Serious: Yes (Death, Other)
  Sender: FDA-Public Use
  Company Number: GR-BIOGENIDEC-2011BI024152

PATIENT
  Age: 34 Year
  Sex: Female

DRUGS (2)
  1. TYSABRI [Suspect]
     Indication: RELAPSING-REMITTING MULTIPLE SCLEROSIS
     Route: 042
     Dates: start: 20070501, end: 20090901
  2. TYSABRI [Suspect]
     Route: 042
     Dates: start: 20100121, end: 20110601

REACTIONS (3)
  - URINARY TRACT INFECTION [None]
  - LUNG INFECTION [None]
  - SEPSIS [None]
